FAERS Safety Report 12386924 (Version 2)
Quarter: 2017Q1

REPORT INFORMATION
  Report Type: Spontaneous
  Country: US (occurrence: US)
  Receive Date: 20160519
  Receipt Date: 20170310
  Transmission Date: 20170428
  Serious: Yes (Hospitalization)
  Sender: FDA-Public Use
  Company Number: US-LUNDBECK-DKLU2013742

PATIENT
  Age: 8 Year
  Sex: Male

DRUGS (1)
  1. SABRIL [Suspect]
     Active Substance: VIGABATRIN
     Indication: INFANTILE SPASMS
     Route: 065
     Dates: start: 201504

REACTIONS (4)
  - Balance disorder [Unknown]
  - Seizure [Unknown]
  - Gait disturbance [Unknown]
  - Pyrexia [Unknown]

NARRATIVE: CASE EVENT DATE: 201604
